FAERS Safety Report 10185986 (Version 1)
Quarter: 2014Q2

REPORT INFORMATION
  Report Type: Spontaneous
  Country: US (occurrence: US)
  Receive Date: 20140521
  Receipt Date: 20140521
  Transmission Date: 20141212
  Serious: No
  Sender: FDA-Public Use
  Company Number: US-PFIZER INC-2014135334

PATIENT
  Age: 38 Year
  Sex: Female

DRUGS (12)
  1. NEURONTIN [Suspect]
     Dosage: UNK
  2. LEVOTHYROXINE SODIUM [Suspect]
     Dosage: UNK
  3. LITHIUM CARBONATE [Suspect]
     Dosage: UNK
  4. STADOL [Suspect]
     Dosage: UNK
  5. VICODIN [Suspect]
     Dosage: UNK
  6. ZOFRAN [Suspect]
     Dosage: UNK
  7. LEXAPRO [Suspect]
     Dosage: UNK
  8. LUNESTA [Suspect]
     Dosage: UNK
  9. ZYRTEC [Suspect]
     Dosage: UNK
  10. QVAR [Suspect]
     Dosage: UNK
  11. XOPENEX [Suspect]
     Dosage: UNK
  12. KLONOPIN [Suspect]
     Dosage: UNK

REACTIONS (1)
  - Drug hypersensitivity [Unknown]
